FAERS Safety Report 5481297-6 (Version None)
Quarter: 2007Q4

REPORT INFORMATION
  Report Type: 
  Country: None (occurrence: None)
  Receive Date: 20071005
  Receipt Date: 20071005
  Transmission Date: 20080405
  Serious: Yes (Hospitalization)
  Sender: FDA-Public Use
  Company Number: None

PATIENT
  Age: 58 Year
  Sex: Male
  Weight: 66.2 kg

DRUGS (2)
  1. GEMFIBROZIL [Suspect]
     Indication: HYPERLIPIDAEMIA
     Dosage: 600MG BID PO
     Route: 048
     Dates: start: 20070524, end: 20070924
  2. CYCLOSPORINE [Suspect]
     Indication: APLASTIC ANAEMIA
     Dosage: 225MG EVERY DAY PO
     Route: 048
     Dates: start: 20070622

REACTIONS (7)
  - BLOOD CREATINE PHOSPHOKINASE INCREASED [None]
  - HAEMORRHAGE [None]
  - HEADACHE [None]
  - HEPATIC ENZYME INCREASED [None]
  - MUSCULOSKELETAL STIFFNESS [None]
  - MYALGIA [None]
  - PYREXIA [None]
